FAERS Safety Report 21803656 (Version 5)
Quarter: 2023Q2

REPORT INFORMATION
  Report Type: Report from Study
  Country: CO (occurrence: CO)
  Receive Date: 20230102
  Receipt Date: 20230626
  Transmission Date: 20230721
  Serious: Yes (Other)
  Sender: FDA-Public Use
  Company Number: CO-002147023-NVSC2022CO028780

PATIENT
  Sex: Female
  Weight: 74 kg

DRUGS (3)
  1. XOLAIR [Suspect]
     Active Substance: OMALIZUMAB
     Indication: Asthma
     Dosage: 300 MG, QMO (STARTED 4 YEARS AGO)
     Route: 058
  2. XOLAIR [Suspect]
     Active Substance: OMALIZUMAB
     Dosage: 150 MG, QMO
     Route: 058
  3. MONTELUKAST [Suspect]
     Active Substance: MONTELUKAST SODIUM
     Indication: Asthma
     Dosage: UNK, PRN (WHEN NEEDED) (STARTED 4 YEARS AGO)
     Route: 048

REACTIONS (10)
  - Asthmatic crisis [Unknown]
  - Sneezing [Unknown]
  - Malaise [Unknown]
  - Influenza [Unknown]
  - Rhinitis [Unknown]
  - Pyrexia [Unknown]
  - Nasal congestion [Unknown]
  - Rhinalgia [Unknown]
  - Productive cough [Unknown]
  - Back pain [Recovered/Resolved]
